FAERS Safety Report 8583988-7 (Version None)
Quarter: 2012Q3

REPORT INFORMATION
  Report Type: 
  Country: None (occurrence: None)
  Receive Date: 20120810
  Receipt Date: 20120804
  Transmission Date: 20120928
  Serious: Yes (Other)
  Sender: FDA-Public Use
  Company Number: US-009507513-1208USA003088

PATIENT

DRUGS (3)
  1. REBETOL [Suspect]
     Indication: HEPATITIS C
     Dosage: UNK
     Route: 048
     Dates: start: 20120101, end: 20120728
  2. VICTRELIS [Suspect]
     Indication: HEPATITIS C
     Dosage: UNK
     Route: 048
     Dates: start: 20120129, end: 20120728
  3. PEG-INTRON [Suspect]
     Indication: HEPATITIS C
     Dosage: UNK
     Route: 058
     Dates: start: 20120101, end: 20120728

REACTIONS (7)
  - ALOPECIA [None]
  - ANAEMIA [None]
  - PLATELET COUNT DECREASED [None]
  - EYE DISORDER [None]
  - CEREBROVASCULAR ACCIDENT [None]
  - ARTHRALGIA [None]
  - BACK PAIN [None]
